FAERS Safety Report 4545346-1 (Version None)
Quarter: 2005Q1

REPORT INFORMATION
  Report Type: 
  Country: None (occurrence: None)
  Receive Date: 20050103
  Receipt Date: 20041222
  Transmission Date: 20050727
  Serious: No
  Sender: FDA-Public Use
  Company Number: F01200404005

PATIENT
  Age: 42 Year
  Sex: Female

DRUGS (3)
  1. OXALIPLATIN SOLUTION 260 MG [Suspect]
     Indication: COLON CANCER
     Dosage: 260 MG Q3W
     Route: 042
     Dates: start: 20040608, end: 20040608
  2. OXALIPLATIN SOLUTION 260 MG [Suspect]
     Indication: SURGERY
     Dosage: 260 MG Q3W
     Route: 042
     Dates: start: 20040608, end: 20040608
  3. CAPECITABINE TABLET 2000 MG [Suspect]
     Dosage: 2000 MG TWICE PER DAY ORAL FOR 2 WEEKS, Q3W
     Route: 048
     Dates: start: 20040608, end: 20040622

REACTIONS (2)
  - DRUG TOXICITY [None]
  - PALMAR-PLANTAR ERYTHRODYSAESTHESIA SYNDROME [None]
